FAERS Safety Report 13861334 (Version 7)
Quarter: 2017Q3

REPORT INFORMATION
  Report Type: Report from Study
  Country: US (occurrence: US)
  Receive Date: 20170811
  Receipt Date: 20170922
  Transmission Date: 20171127
  Serious: Yes (Death, Hospitalization)
  Sender: FDA-Public Use
  Company Number: US-EXELIXIS-CABO-17010105

PATIENT
  Age: 69 Year
  Sex: Male

DRUGS (18)
  1. CABOMETYX [Suspect]
     Active Substance: CABOZANTINIB S-MALATE
     Indication: RENAL CANCER
     Dosage: 40 MG, QD
     Route: 048
     Dates: start: 20170628, end: 201708
  2. PROMETHAZINE [Concomitant]
     Active Substance: PROMETHAZINE\PROMETHAZINE HYDROCHLORIDE
  3. TAMSULOSIN [Concomitant]
     Active Substance: TAMSULOSIN
  4. TYLENOL [Concomitant]
     Active Substance: ACETAMINOPHEN
  5. ANASPAZ [Concomitant]
     Active Substance: HYOSCYAMINE SULFATE
  6. APAP [Concomitant]
     Active Substance: ACETAMINOPHEN
  7. LOVENOX [Concomitant]
     Active Substance: ENOXAPARIN SODIUM
  8. LACTULOSE. [Concomitant]
     Active Substance: LACTULOSE
  9. MIRALAX [Concomitant]
     Active Substance: POLYETHYLENE GLYCOL 3350
  10. DOXYCYCLINE. [Concomitant]
     Active Substance: DOXYCYCLINE
  11. HALDOL [Concomitant]
     Active Substance: HALOPERIDOL
  12. METHADONE [Concomitant]
     Active Substance: METHADONE HYDROCHLORIDE
  13. PROTONIX [Concomitant]
     Active Substance: PANTOPRAZOLE SODIUM
  14. XGEVA [Concomitant]
     Active Substance: DENOSUMAB
  15. DILAUDID [Concomitant]
     Active Substance: HYDROMORPHONE HYDROCHLORIDE
  16. MIRTAZAPINE. [Concomitant]
     Active Substance: MIRTAZAPINE
  17. DULOXETINE. [Concomitant]
     Active Substance: DULOXETINE
  18. SENNA [Concomitant]
     Active Substance: SENNA LEAF\SENNOSIDES\SENNOSIDES A AND B

REACTIONS (2)
  - Death [Fatal]
  - Pulmonary oedema [Unknown]

NARRATIVE: CASE EVENT DATE: 20170808
